FAERS Safety Report 8294840-9 (Version None)
Quarter: 2012Q2

REPORT INFORMATION
  Report Type: 
  Country: None (occurrence: None)
  Receive Date: 20120418
  Receipt Date: 20120409
  Transmission Date: 20120825
  Serious: Yes (Other)
  Sender: FDA-Public Use
  Company Number: US-ASTRAZENECA-2012SE23109

PATIENT
  Age: 63 Year
  Sex: Female
  Weight: 97.5 kg

DRUGS (5)
  1. ZESTRIL [Suspect]
     Route: 048
  2. NATURE THYROID [Concomitant]
  3. ZESTRIL [Suspect]
     Indication: HYPERTENSION
     Route: 048
     Dates: start: 19970101
  4. VITAMIN D [Concomitant]
  5. FOLATE ACID [Concomitant]

REACTIONS (10)
  - ASTHENIA [None]
  - LOSS OF CONSCIOUSNESS [None]
  - MALAISE [None]
  - ATRIAL FIBRILLATION [None]
  - HYPERTENSION [None]
  - ARTHRALGIA [None]
  - WEIGHT INCREASED [None]
  - DRUG INEFFECTIVE [None]
  - HYPERSENSITIVITY [None]
  - SWOLLEN TONGUE [None]
